FAERS Safety Report 13024010 (Version 2)
Quarter: 2016Q4

REPORT INFORMATION
  Report Type: Spontaneous
  Country: CN (occurrence: CN)
  Receive Date: 20161213
  Receipt Date: 20161219
  Transmission Date: 20170207
  Serious: Yes (Other)
  Sender: FDA-Public Use
  Company Number: CN-PFIZER INC-2016573883

PATIENT
  Age: 70 Year
  Sex: Female
  Weight: 62 kg

DRUGS (20)
  1. ESOMEPRAZOLE SODIUM. [Concomitant]
     Active Substance: ESOMEPRAZOLE SODIUM
     Dosage: 40 MG, 2X/DAY
     Route: 041
     Dates: start: 20161014, end: 20161019
  2. SODIUM CHLORIDE. [Concomitant]
     Active Substance: SODIUM CHLORIDE
     Dosage: 100 ML, 1X/DAY
     Route: 041
     Dates: start: 20161008, end: 20161013
  3. CEFTRIAXONE SODIUM AND TAZOBACTAM SODIUM FOR INJECTION [Concomitant]
     Indication: INFECTION
     Dosage: 2 G, 2X/DAY
     Route: 041
     Dates: start: 20161008, end: 20161021
  4. ESOMEPRAZOLE SODIUM. [Concomitant]
     Active Substance: ESOMEPRAZOLE SODIUM
     Indication: MUSCLE SPASMS
     Dosage: 40 MG, 1X/DAY
     Route: 041
     Dates: start: 20161008, end: 20161013
  5. ETIMICIN SULFATE [Concomitant]
     Active Substance: ETIMICIN SULFATE
     Indication: INFECTION
     Dosage: 100 ML, 2X/DAY
     Route: 041
     Dates: start: 20161008, end: 20161019
  6. NEUTRAL INSULIN /01223201/ [Concomitant]
     Indication: BLOOD GLUCOSE
     Dosage: 3 IU, 1X/DAY
     Route: 041
     Dates: start: 20161008, end: 20161008
  7. SODIUM CHLORIDE. [Concomitant]
     Active Substance: SODIUM CHLORIDE
     Indication: VEHICLE SOLUTION USE
     Dosage: 100 ML, 2X/DAY
     Route: 041
     Dates: start: 20161008, end: 20161021
  8. MONTELUKAST SODIUM. [Concomitant]
     Active Substance: MONTELUKAST SODIUM
     Indication: BRONCHITIS
     Dosage: 10 MG, 1X/DAY
     Route: 048
     Dates: start: 20161009, end: 20161021
  9. GLUCOSE + SODIUM CHLORIDE BIOPHARM [Concomitant]
     Dosage: 250 ML, 1X/DAY
     Route: 041
     Dates: start: 20161009, end: 20161012
  10. AMINOCAPROIC ACID. [Concomitant]
     Active Substance: AMINOCAPROIC ACID
     Indication: HAEMORRHAGE
     Dosage: 10 G, 1X/DAY
     Route: 041
     Dates: start: 20161008, end: 20161008
  11. DIFLUCAN [Suspect]
     Active Substance: FLUCONAZOLE
     Indication: FUNGAL INFECTION
     Dosage: 150 MG, 1X/DAY
     Route: 048
     Dates: start: 20161014, end: 20161017
  12. SODIUM CHLORIDE. [Concomitant]
     Active Substance: SODIUM CHLORIDE
     Dosage: 100 ML, 2X/DAY
     Route: 041
     Dates: start: 20161014, end: 20161019
  13. POTASSIUM CHLORIDE. [Concomitant]
     Active Substance: POTASSIUM CHLORIDE
     Indication: BLOOD POTASSIUM
     Dosage: 5 ML, 1X/DAY
     Route: 041
     Dates: start: 20161008, end: 20161008
  14. OMEPRAZOLE. [Concomitant]
     Active Substance: OMEPRAZOLE
     Indication: MUSCLE SPASMS
     Dosage: 40 MG, 1X/DAY
     Route: 041
     Dates: start: 20161008, end: 20161013
  15. OMEPRAZOLE. [Concomitant]
     Active Substance: OMEPRAZOLE
     Dosage: 40 MG, 2X/DAY
     Route: 041
     Dates: start: 20161014, end: 20161019
  16. GLUCOSE + SODIUM CHLORIDE BIOPHARM [Concomitant]
     Indication: VEHICLE SOLUTION USE
     Dosage: 250 ML, 1X/DAY
     Route: 041
     Dates: start: 20161008, end: 20161008
  17. POTASSIUM CHLORIDE. [Concomitant]
     Active Substance: POTASSIUM CHLORIDE
     Dosage: 5 ML, 1X/DAY
     Route: 041
     Dates: start: 20161009, end: 20161012
  18. NEUTRAL INSULIN /01223201/ [Concomitant]
     Dosage: 3 IU, 1X/DAY
     Route: 041
     Dates: start: 20161009, end: 20161012
  19. SODIUM CHLORIDE. [Concomitant]
     Active Substance: SODIUM CHLORIDE
     Dosage: UNK
  20. AMINOCAPROIC ACID. [Concomitant]
     Active Substance: AMINOCAPROIC ACID
     Dosage: 8 G, 1X/DAY
     Route: 041
     Dates: start: 20161009, end: 20161012

REACTIONS (1)
  - Myocardial necrosis marker increased [Recovering/Resolving]

NARRATIVE: CASE EVENT DATE: 20161016
